FAERS Safety Report 14860132 (Version 1)
Quarter: 2018Q2

REPORT INFORMATION
  Report Type: Spontaneous
  Country: CN (occurrence: CN)
  Receive Date: 20180508
  Receipt Date: 20180508
  Transmission Date: 20180711
  Serious: Yes (Other)
  Sender: FDA-Public Use
  Company Number: CN-PFIZER INC-2018184934

PATIENT
  Age: 63 Year
  Sex: Female
  Weight: 46 kg

DRUGS (3)
  1. LANSOPRAZOLE. [Suspect]
     Active Substance: LANSOPRAZOLE
     Indication: HYPERCHLORHYDRIA
     Dosage: 30 MG, ONCE DAILY
     Route: 048
     Dates: start: 20180305, end: 20180310
  2. CELECOXIB. [Suspect]
     Active Substance: CELECOXIB
     Indication: ANALGESIC THERAPY
     Dosage: 0.2 G, TWICE DAILY
     Route: 048
     Dates: start: 20180305, end: 20180310
  3. QI XIN [Suspect]
     Active Substance: METHYLCOBALAMIN
     Indication: NERVOUS SYSTEM DISORDER
     Dosage: 0.5 G, THREE TIMES A DAY
     Route: 048
     Dates: start: 20180305, end: 20180310

REACTIONS (8)
  - Dermatitis exfoliative [Recovering/Resolving]
  - Erythema [None]
  - Conjunctivitis allergic [None]
  - Ear swelling [None]
  - Hypersensitivity [Recovering/Resolving]
  - Swelling [None]
  - Conjunctivitis [Recovering/Resolving]
  - Pruritus [None]

NARRATIVE: CASE EVENT DATE: 20180308
